FAERS Safety Report 7693105-3 (Version None)
Quarter: 2011Q3

REPORT INFORMATION
  Report Type: 
  Country: None (occurrence: None)
  Receive Date: 20110819
  Receipt Date: 20110809
  Transmission Date: 20111222
  Serious: Yes (Other)
  Sender: FDA-Public Use
  Company Number: ZA-RANBAXY-2011RR-46873

PATIENT
  Age: 20 Year
  Sex: Male

DRUGS (4)
  1. CARBAMAZEPINE [Suspect]
     Indication: EPILEPSY
     Dosage: 400 MG, BID
     Route: 065
  2. VALPROIC ACID [Suspect]
     Indication: EPILEPSY
     Dosage: 1000 MG, UNK
     Route: 065
  3. VALPROIC ACID [Suspect]
     Dosage: 1500 MG, UNK
     Route: 065
  4. TOPIRAMATE [Suspect]
     Indication: EPILEPSY
     Dosage: 50 MG, BID
     Route: 065

REACTIONS (1)
  - EPILEPTIC PSYCHOSIS [None]
